FAERS Safety Report 21610514 (Version 1)
Quarter: 2022Q4

REPORT INFORMATION
  Report Type: Spontaneous
  Country: US (occurrence: US)
  Receive Date: 20221117
  Receipt Date: 20221117
  Transmission Date: 20230113
  Serious: Yes (Other)
  Sender: FDA-Public Use
  Company Number: US-TEVA-2022-US-2825001

PATIENT
  Age: 65 Year
  Sex: Female

DRUGS (11)
  1. CLONAZEPAM [Suspect]
     Active Substance: CLONAZEPAM
     Indication: Vertigo positional
     Dosage: 2 MILLIGRAM DAILY;
     Route: 065
  2. COGENTIN [Suspect]
     Active Substance: BENZTROPINE MESYLATE
     Indication: Product used for unknown indication
     Route: 065
     Dates: start: 20221021, end: 2022
  3. WELLBUTRIN [Concomitant]
     Active Substance: BUPROPION HYDROCHLORIDE
     Indication: Product used for unknown indication
  4. BISOPROLOL [Concomitant]
     Active Substance: BISOPROLOL
     Indication: Product used for unknown indication
  5. PROTONIX [Concomitant]
     Active Substance: PANTOPRAZOLE SODIUM
     Indication: Product used for unknown indication
  6. SIMVASTATIN [Concomitant]
     Active Substance: SIMVASTATIN
     Indication: Product used for unknown indication
  7. COMPAZINE [Concomitant]
     Active Substance: PROCHLORPERAZINE MALEATE
     Indication: Product used for unknown indication
  8. ALBUTEROL [Concomitant]
     Active Substance: ALBUTEROL
     Indication: Product used for unknown indication
  9. ZYRTEC [Concomitant]
     Active Substance: CETIRIZINE HYDROCHLORIDE
     Indication: Product used for unknown indication
  10. MUCINEX [Concomitant]
     Active Substance: GUAIFENESIN
     Indication: Product used for unknown indication
  11. FLONASE [Concomitant]
     Active Substance: FLUTICASONE PROPIONATE
     Indication: Product used for unknown indication

REACTIONS (5)
  - Tardive dyskinesia [Unknown]
  - Dyskinesia [Unknown]
  - Dizziness [Unknown]
  - Balance disorder [Unknown]
  - Postural tremor [Unknown]

NARRATIVE: CASE EVENT DATE: 20221001
